FAERS Safety Report 4357385-4 (Version None)
Quarter: 2004Q2

REPORT INFORMATION
  Report Type: 
  Country: None (occurrence: None)
  Receive Date: 20040507
  Receipt Date: 20031022
  Transmission Date: 20050107
  Serious: Yes (Life-Threatening, Hospitalization, Other)
  Sender: FDA-Public Use
  Company Number: 2003-BP-03479BP

PATIENT
  Age: 67 Year
  Sex: Male

DRUGS (13)
  1. MICARDIS [Suspect]
     Indication: CEREBROVASCULAR ACCIDENT PROPHYLAXIS
     Dosage: PO
     Route: 048
     Dates: start: 20030506, end: 20030527
  2. MICARDIS [Suspect]
     Indication: MYOCARDIAL INFARCTION
     Dosage: PO
     Route: 048
     Dates: start: 20030506, end: 20030527
  3. MICARDIS [Suspect]
     Indication: PROPHYLAXIS
     Dosage: PO
     Route: 048
     Dates: start: 20030506, end: 20030527
  4. RAMIPRIL [Suspect]
     Indication: CEREBROVASCULAR ACCIDENT PROPHYLAXIS
     Dosage: PO
     Route: 048
     Dates: start: 20030506, end: 20030527
  5. RAMIPRIL [Suspect]
     Indication: MYOCARDIAL INFARCTION
     Dosage: PO
     Route: 048
     Dates: start: 20030506, end: 20030527
  6. RAMIPRIL [Suspect]
     Indication: PROPHYLAXIS
     Dosage: PO
     Route: 048
     Dates: start: 20030506, end: 20030527
  7. ANTIBIOTICS (NR) [Suspect]
  8. DOXAZOSIN (NR) [Concomitant]
  9. TORASEMIDE (TORASEMIDE) (NR) [Concomitant]
  10. MONOCLAIR (ISOSORBIDE MONONITRATE) (NR) [Concomitant]
  11. ASPIRIN [Concomitant]
  12. ENALAPRIL (ENALAPRIL) (NR) [Concomitant]
  13. NITRENDIPIN (NR) [Concomitant]

REACTIONS (5)
  - BLOOD PH DECREASED [None]
  - BLOOD POTASSIUM INCREASED [None]
  - DEHYDRATION [None]
  - DIALYSIS [None]
  - DIARRHOEA [None]
